FAERS Safety Report 14253574 (Version 2)
Quarter: 2017Q4

REPORT INFORMATION
  Report Type: Spontaneous
  Country: US (occurrence: US)
  Receive Date: 20171206
  Receipt Date: 20171206
  Transmission Date: 20180321
  Serious: Yes (Life-Threatening)
  Sender: FDA-Public Use
  Company Number: US-ALKABELLO-2017AA004003

PATIENT
  Age: 55 Year
  Sex: Female
  Weight: 98.19 kg

DRUGS (11)
  1. SALBUTAMOL [Concomitant]
     Active Substance: ALBUTEROL
  2. COLECALCIFEROL [Concomitant]
     Active Substance: CHOLECALCIFEROL
  3. GRASTEK [Suspect]
     Active Substance: PHLEUM PRATENSE POLLEN
     Indication: RHINITIS ALLERGIC
     Route: 060
     Dates: start: 20170214, end: 20170419
  4. EPIPEN [Concomitant]
     Active Substance: EPINEPHRINE
  5. ELETRIPTAN. [Concomitant]
     Active Substance: ELETRIPTAN
  6. LIDODERM [Concomitant]
     Active Substance: LIDOCAINE
  7. CYANOCOBALAMIN. [Concomitant]
     Active Substance: CYANOCOBALAMIN
  8. FISH OIL [Concomitant]
     Active Substance: FISH OIL
  9. UBIDECARENONE [Concomitant]
     Active Substance: UBIDECARENONE
  10. FAMOTIDINE. [Concomitant]
     Active Substance: FAMOTIDINE
  11. OLOPATADINE HYDROCHLORIDE. [Concomitant]
     Active Substance: OLOPATADINE HYDROCHLORIDE

REACTIONS (1)
  - Anaphylactic reaction [Not Recovered/Not Resolved]

NARRATIVE: CASE EVENT DATE: 20170419
